FAERS Safety Report 6466043-1 (Version None)
Quarter: 2009Q4

REPORT INFORMATION
  Report Type: 
  Country: None (occurrence: None)
  Receive Date: 20091202
  Receipt Date: 20091124
  Transmission Date: 20100525
  Serious: Yes (Other)
  Sender: FDA-Public Use
  Company Number: US-JNJFOC-20091107641

PATIENT
  Age: 64 Year
  Sex: Female

DRUGS (2)
  1. LEVAQUIN [Suspect]
     Indication: BRONCHITIS
     Route: 048
     Dates: start: 20091115, end: 20091117
  2. LISINOPRIL [Concomitant]
     Route: 065

REACTIONS (1)
  - BLOOD SODIUM DECREASED [None]
